FAERS Safety Report 23976953 (Version 1)
Quarter: 2024Q2

REPORT INFORMATION
  Report Type: Spontaneous
  Country: US (occurrence: US)
  Receive Date: 20240614
  Receipt Date: 20240614
  Transmission Date: 20240716
  Serious: Yes (Other)
  Sender: FDA-Public Use
  Company Number: US-ALEMBIC PHARMACUETICALS LIMITED-2024SCAL000828

PATIENT

DRUGS (1)
  1. BUPROPION HYDROCHLORIDE [Suspect]
     Active Substance: BUPROPION HYDROCHLORIDE
     Indication: Product used for unknown indication
     Dosage: UNK
     Route: 065

REACTIONS (6)
  - Cardiotoxicity [Unknown]
  - Cardiac arrest [Unknown]
  - Toxicity to various agents [Unknown]
  - Seizure [Recovered/Resolved]
  - Arrhythmia [Unknown]
  - Hypotension [Unknown]
